FAERS Safety Report 13900978 (Version 1)
Quarter: 2017Q3

REPORT INFORMATION
  Report Type: Spontaneous
  Country: CN (occurrence: CN)
  Receive Date: 20170824
  Receipt Date: 20170824
  Transmission Date: 20171127
  Serious: Yes (Other)
  Sender: FDA-Public Use
  Company Number: CN-009507513-1708CHN009837

PATIENT
  Age: 44 Year
  Sex: Female

DRUGS (1)
  1. MARVELON [Suspect]
     Active Substance: DESOGESTREL\ETHINYL ESTRADIOL
     Indication: MENORRHAGIA
     Dosage: ONE TABLET EACH IN MORNING AND EVENING
     Route: 048
     Dates: start: 2015

REACTIONS (3)
  - Menstruation delayed [Unknown]
  - Bladder mass [Unknown]
  - Product use in unapproved indication [Unknown]

NARRATIVE: CASE EVENT DATE: 2015
